FAERS Safety Report 14305272 (Version 1)
Quarter: 2017Q4

REPORT INFORMATION
  Report Type: Spontaneous
  Country: JP (occurrence: JP)
  Receive Date: 20171219
  Receipt Date: 20171219
  Transmission Date: 20180321
  Serious: Yes (Hospitalization, Other)
  Sender: FDA-Public Use
  Company Number: JP-OTSUKA-BJ20102251

PATIENT
  Age: 36 Year
  Sex: Female

DRUGS (9)
  1. ABILIFY [Suspect]
     Active Substance: ARIPIPRAZOLE
     Dosage: 12 MG, BID
     Route: 048
     Dates: start: 20091124, end: 20100418
  2. DEPROMEL                           /00615201/ [Concomitant]
     Active Substance: FLUVOXAMINE
     Indication: ANXIETY
     Dosage: 100 MG, QD
     Route: 048
     Dates: start: 20090622, end: 20100418
  3. DEPROMEL                           /00615201/ [Concomitant]
     Active Substance: FLUVOXAMINE
     Dosage: 50 MG, QD
     Route: 048
     Dates: start: 20100419, end: 20100509
  4. DEPROMEL                           /00615201/ [Concomitant]
     Active Substance: FLUVOXAMINE
     Dosage: 100 MG, QD
     Route: 048
     Dates: start: 20100510
  5. RIVOTRIL [Concomitant]
     Active Substance: CLONAZEPAM
     Indication: ANXIETY
     Dosage: 3 MG, QD
     Route: 048
     Dates: start: 20090622, end: 20100419
  6. TASMOLIN [Concomitant]
     Active Substance: BIPERIDEN
     Indication: AKATHISIA
     Dosage: 2 MG, QD
     Route: 048
     Dates: start: 20090622, end: 20100419
  7. ABILIFY [Suspect]
     Active Substance: ARIPIPRAZOLE
     Indication: PRODUCT USED FOR UNKNOWN INDICATION
     Dosage: 12 MG, QD
     Route: 048
     Dates: start: 20091110, end: 20091123
  8. ABILIFY [Suspect]
     Active Substance: ARIPIPRAZOLE
     Dosage: 12 MG, QD
     Route: 048
     Dates: start: 20100419, end: 20100509
  9. ABILIFY [Suspect]
     Active Substance: ARIPIPRAZOLE
     Dosage: 12 MG, BID
     Route: 048
     Dates: start: 20100510

REACTIONS (3)
  - Abortion spontaneous [Recovered/Resolved]
  - Uterine dilation and curettage [Unknown]
  - Maternal exposure during pregnancy [Recovered/Resolved]

NARRATIVE: CASE EVENT DATE: 20100428
